FAERS Safety Report 9513162 (Version 1)
Quarter: 2013Q3

REPORT INFORMATION
  Report Type: Spontaneous
  Country: US (occurrence: US)
  Receive Date: 20130910
  Receipt Date: 20130910
  Transmission Date: 20140515
  Serious: No
  Sender: FDA-Public Use
  Company Number: US-PFIZER INC-2013258003

PATIENT
  Age: 65 Year
  Sex: Female
  Weight: 55.79 kg

DRUGS (5)
  1. MOTRIN IB [Suspect]
     Indication: PAIN
     Dosage: TWO CAPLETS AT A TIME EVERY FOUR HOURS FOR A TOTAL OF SIX CAPLETS A DAY
     Route: 048
     Dates: start: 20130714, end: 20130716
  2. PROPRANOLOL [Concomitant]
     Indication: BLOOD PRESSURE ABNORMAL
     Dosage: 40 MG, TWO TIMES A DAY
  3. SIMVASTATIN [Concomitant]
     Indication: BLOOD CHOLESTEROL ABNORMAL
     Dosage: 10 MG, 1X/DAY
  4. FOSAMAX [Concomitant]
     Indication: OSTEOPENIA
     Dosage: 70 MG, WEEKLY
  5. CITALOPRAM [Concomitant]
     Indication: ANXIETY
     Dosage: 40 MG, 1X/DAY

REACTIONS (1)
  - Constipation [Not Recovered/Not Resolved]
